FAERS Safety Report 9733717 (Version 1)
Quarter: 2013Q4

REPORT INFORMATION
  Report Type: Spontaneous
  Country: US (occurrence: US)
  Receive Date: 20131205
  Receipt Date: 20131205
  Transmission Date: 20140711
  Serious: Yes (Hospitalization, Other)
  Sender: FDA-Public Use
  Company Number: US-RB-061108-13

PATIENT
  Sex: Male

DRUGS (1)
  1. SUBOXONE FILM [Suspect]
     Indication: PAIN
     Dosage: SUBOXONE FILM; TAKING 6-12 MONTHS
     Route: 060
     Dates: end: 201308

REACTIONS (5)
  - Off label use [Recovered/Resolved]
  - Back disorder [Recovered/Resolved]
  - Hallucination [Recovered/Resolved]
  - Back pain [Not Recovered/Not Resolved]
  - Therapeutic product ineffective [Not Recovered/Not Resolved]
